FAERS Safety Report 17794784 (Version 1)
Quarter: 2020Q2

REPORT INFORMATION
  Report Type: Spontaneous
  Country: US (occurrence: US)
  Receive Date: 20200515
  Receipt Date: 20200515
  Transmission Date: 20200714
  Serious: No
  Sender: FDA-Public Use
  Company Number: US-ASTRAZENECA-2020SE59638

PATIENT
  Sex: Female
  Weight: 70.3 kg

DRUGS (2)
  1. SYMBICORT [Suspect]
     Active Substance: BUDESONIDE\FORMOTEROL FUMARATE DIHYDRATE
     Indication: MYASTHENIA GRAVIS
     Dosage: 80 MCG/4.5 MCG, 2 PUFFS, TWICE DAILY
     Route: 055
     Dates: start: 202002
  2. ALBUTEROL SUPHATE IPRAPROPIUM BROMIDE [Concomitant]
     Indication: DYSPNOEA
     Dosage: 0.5 MG/3MG AS REQUIRED
     Route: 055

REACTIONS (2)
  - Alopecia [Unknown]
  - Hair disorder [Unknown]

NARRATIVE: CASE EVENT DATE: 2020
